FAERS Safety Report 17644248 (Version 1)
Quarter: 2020Q2

REPORT INFORMATION
  Report Type: Spontaneous
  Country: US (occurrence: US)
  Receive Date: 20200408
  Receipt Date: 20200408
  Transmission Date: 20200713
  Serious: No
  Sender: FDA-Public Use
  Company Number: US-PFIZER INC-2020140824

PATIENT
  Age: 86 Year
  Sex: Female

DRUGS (1)
  1. RETACRIT [Suspect]
     Active Substance: EPOETIN ALFA-EPBX
     Dosage: 20000 IU, CYCLIC EVERY 2 WEEKS
     Dates: start: 2019

REACTIONS (1)
  - Blood count abnormal [Recovering/Resolving]
